FAERS Safety Report 24257178 (Version 1)
Quarter: 2024Q3

REPORT INFORMATION
  Report Type: Spontaneous
  Country: US (occurrence: US)
  Receive Date: 20240828
  Receipt Date: 20240828
  Transmission Date: 20241017
  Serious: No
  Sender: GLAXOSMITHKLINE
  Company Number: US-GSKCCFUS-Case-02081613_AE-115084

PATIENT
  Sex: Male

DRUGS (1)
  1. BREO ELLIPTA [Suspect]
     Active Substance: FLUTICASONE FUROATE\VILANTEROL TRIFENATATE
     Indication: Product used for unknown indication
     Dosage: UNK UNK, QD, 200/25
     Route: 055
     Dates: start: 202402

REACTIONS (3)
  - Dyspnoea [Unknown]
  - Nasopharyngitis [Unknown]
  - Drug ineffective [Unknown]
